FAERS Safety Report 5179073-7 (Version None)
Quarter: 2006Q4

REPORT INFORMATION
  Report Type: 
  Country: None (occurrence: None)
  Receive Date: 20061219
  Receipt Date: 20060608
  Transmission Date: 20070319
  Serious: Yes (Other)
  Sender: FDA-Public Use
  Company Number: DE-SHR-DE-2006-014891

PATIENT
  Age: 26 Year
  Sex: Female

DRUGS (2)
  1. YASMIN [Suspect]
     Dates: start: 20010101
  2. NITRENDIPINE [Concomitant]
     Dosage: .5 TAB(S), 1X/DAY

REACTIONS (3)
  - ADRENAL ADENOMA [None]
  - BLOOD ALDOSTERONE INCREASED [None]
  - HYPERTENSION [None]
